FAERS Safety Report 8163054-5 (Version None)
Quarter: 2012Q1

REPORT INFORMATION
  Report Type: 
  Country: None (occurrence: None)
  Receive Date: 20120224
  Receipt Date: 20120222
  Transmission Date: 20120608
  Serious: Yes (Death)
  Sender: FDA-Public Use
  Company Number: US-GLAXOSMITHKLINE-A0882818A

PATIENT
  Age: 63 Year
  Sex: Male
  Weight: 147.7 kg

DRUGS (7)
  1. GLUCOTROL [Concomitant]
  2. GLIPIZIDE [Concomitant]
  3. AVANDIA [Suspect]
     Indication: TYPE 2 DIABETES MELLITUS
     Route: 048
     Dates: start: 20000327, end: 20070511
  4. LISINOPRIL [Concomitant]
  5. UROCIT-K [Concomitant]
  6. ZOCOR [Concomitant]
  7. ALLOPURINOL [Concomitant]

REACTIONS (4)
  - CARDIAC DISORDER [None]
  - SUDDEN DEATH [None]
  - MYOCARDIAL INFARCTION [None]
  - ARTERIOSCLEROSIS [None]
